FAERS Safety Report 15045482 (Version 1)
Quarter: 2018Q2

REPORT INFORMATION
  Report Type: Spontaneous
  Country: US (occurrence: US)
  Receive Date: 20180601
  Receipt Date: 20180601
  Transmission Date: 20180711
  Serious: Yes (Hospitalization)
  Sender: FDA-Public Use
  Company Number: None

PATIENT
  Age: 4 Year

DRUGS (1)
  1. VIGABATRIN 500MG [Suspect]
     Active Substance: VIGABATRIN
     Indication: EPILEPSY
     Route: 048
     Dates: start: 20161005

REACTIONS (3)
  - Influenza [None]
  - Drug dose omission [None]
  - Manufacturing product shipping issue [None]

NARRATIVE: CASE EVENT DATE: 20180525
